FAERS Safety Report 9316329 (Version 1)
Quarter: 2013Q2

REPORT INFORMATION
  Report Type: Spontaneous
  Country: IT (occurrence: None)
  Receive Date: 20130522
  Receipt Date: 20130522
  Transmission Date: 20140414
  Serious: Yes (Hospitalization)
  Sender: FDA-Public Use
  Company Number: 2013AP005219

PATIENT
  Sex: Female

DRUGS (2)
  1. AZITHROMYCIN (AZITHROMYCIN) [Suspect]
  2. CEFIXIME [Suspect]

REACTIONS (1)
  - Hypertransaminasaemia [None]
